FAERS Safety Report 20001127 (Version 1)
Quarter: 2021Q4

REPORT INFORMATION
  Report Type: Spontaneous
  Country: US (occurrence: US)
  Receive Date: 20211026
  Receipt Date: 20211026
  Transmission Date: 20220303
  Serious: Yes (Hospitalization)
  Sender: FDA-Public Use
  Company Number: None

PATIENT
  Age: 64 Year
  Sex: Female

DRUGS (10)
  1. SANDOSTATIN LAR DEPOT [Suspect]
     Active Substance: OCTREOTIDE ACETATE
     Indication: Meningeal neoplasm
     Dosage: ?          OTHER DOSE:SANDOSTATIN LAR DE;OTHER FREQUENCY:EVERY 28 DAYS;
     Route: 058
     Dates: start: 20210611
  2. SANDOSTATIN LAR DEPOT [Suspect]
     Active Substance: OCTREOTIDE ACETATE
     Indication: Benign neoplasm
  3. EVEROLIMUS [Suspect]
     Active Substance: EVEROLIMUS
     Indication: Chemotherapy
     Dosage: ?          OTHER DOSE:EVEROLIMUS 7.5MG;
     Route: 048
     Dates: start: 20211008
  4. ALPRAZOLAM [Concomitant]
     Active Substance: ALPRAZOLAM
  5. LOMOTRIGINE [Concomitant]
  6. LEVETIRACETAM [Concomitant]
     Active Substance: LEVETIRACETAM
  7. LORAZEPAM [Concomitant]
     Active Substance: LORAZEPAM
  8. PILOCARPINE [Concomitant]
     Active Substance: PILOCARPINE
  9. TRAMADOL HCL [Concomitant]
     Active Substance: TRAMADOL HYDROCHLORIDE
  10. XYLOCAINE INJ. [Concomitant]

REACTIONS (2)
  - Stomatitis [None]
  - Fall [None]

NARRATIVE: CASE EVENT DATE: 20210526
